FAERS Safety Report 8311701-7 (Version None)
Quarter: 2012Q2

REPORT INFORMATION
  Report Type: 
  Country: None (occurrence: None)
  Receive Date: 20120425
  Receipt Date: 20120418
  Transmission Date: 20120825
  Serious: No
  Sender: FDA-Public Use
  Company Number: US-PFIZER INC-2012097506

PATIENT
  Age: 68 Year

DRUGS (3)
  1. MEDROL [Suspect]
     Indication: ASTHMA
  2. MEDROL [Suspect]
     Indication: NASAL CONGESTION
  3. MEDROL [Suspect]
     Indication: NASAL INFLAMMATION
     Dosage: 4 MG, ONE OR TWO TIMES A WEEK AT A SINGLE 4MG DOSE.

REACTIONS (2)
  - ASTHMA [None]
  - COUNTERFEIT DRUG ADMINISTERED [None]
